FAERS Safety Report 12797634 (Version 1)
Quarter: 2016Q3

REPORT INFORMATION
  Report Type: Spontaneous
  Country: US (occurrence: US)
  Receive Date: 20160930
  Receipt Date: 20160930
  Transmission Date: 20161109
  Serious: Yes (Hospitalization)
  Sender: FDA-Public Use
  Company Number: US-JNJFOC-20160712714

PATIENT
  Sex: Female

DRUGS (21)
  1. LEVAQUIN [Suspect]
     Active Substance: LEVOFLOXACIN
     Indication: ORAL INFECTION
     Route: 048
     Dates: start: 20081018
  2. LEVAQUIN [Suspect]
     Active Substance: LEVOFLOXACIN
     Indication: URINARY TRACT INFECTION
     Route: 048
     Dates: start: 20090211
  3. LEVAQUIN [Suspect]
     Active Substance: LEVOFLOXACIN
     Indication: TOOTH INFECTION
     Route: 048
     Dates: start: 20040905
  4. LEVAQUIN [Suspect]
     Active Substance: LEVOFLOXACIN
     Indication: TOOTH ABSCESS
     Route: 048
     Dates: start: 2002
  5. LEVAQUIN [Suspect]
     Active Substance: LEVOFLOXACIN
     Indication: TOOTH ABSCESS
     Route: 048
     Dates: start: 20040905
  6. LEVAQUIN [Suspect]
     Active Substance: LEVOFLOXACIN
     Indication: URINARY TRACT INFECTION
     Route: 048
     Dates: start: 2002
  7. LEVAQUIN [Suspect]
     Active Substance: LEVOFLOXACIN
     Indication: ORAL INFECTION
     Route: 048
     Dates: start: 20090211
  8. LEVAQUIN [Suspect]
     Active Substance: LEVOFLOXACIN
     Indication: ORAL INFECTION
     Route: 048
     Dates: start: 20031001
  9. LEVAQUIN [Suspect]
     Active Substance: LEVOFLOXACIN
     Indication: TOOTH INFECTION
     Route: 048
     Dates: start: 20031001
  10. LEVAQUIN [Suspect]
     Active Substance: LEVOFLOXACIN
     Indication: URINARY TRACT INFECTION
     Route: 048
     Dates: start: 20031001
  11. LEVAQUIN [Suspect]
     Active Substance: LEVOFLOXACIN
     Indication: TOOTH INFECTION
     Route: 048
     Dates: start: 20090211
  12. LEVAQUIN [Suspect]
     Active Substance: LEVOFLOXACIN
     Indication: TOOTH ABSCESS
     Route: 048
     Dates: start: 20090211
  13. LEVAQUIN [Suspect]
     Active Substance: LEVOFLOXACIN
     Indication: TOOTH ABSCESS
     Route: 048
     Dates: start: 20081018
  14. METFORMIN [Concomitant]
     Active Substance: METFORMIN HYDROCHLORIDE
     Indication: TYPE 2 DIABETES MELLITUS
     Route: 065
  15. LEVAQUIN [Suspect]
     Active Substance: LEVOFLOXACIN
     Indication: TOOTH INFECTION
     Route: 048
     Dates: start: 2002
  16. LEVAQUIN [Suspect]
     Active Substance: LEVOFLOXACIN
     Indication: URINARY TRACT INFECTION
     Route: 048
     Dates: start: 20081018
  17. LEVAQUIN [Suspect]
     Active Substance: LEVOFLOXACIN
     Indication: TOOTH INFECTION
     Route: 048
     Dates: start: 20081018
  18. LEVAQUIN [Suspect]
     Active Substance: LEVOFLOXACIN
     Indication: TOOTH ABSCESS
     Route: 048
     Dates: start: 20031001
  19. LEVAQUIN [Suspect]
     Active Substance: LEVOFLOXACIN
     Indication: ORAL INFECTION
     Route: 048
     Dates: start: 2002
  20. LEVAQUIN [Suspect]
     Active Substance: LEVOFLOXACIN
     Indication: ORAL INFECTION
     Route: 048
     Dates: start: 20040905
  21. LEVAQUIN [Suspect]
     Active Substance: LEVOFLOXACIN
     Indication: URINARY TRACT INFECTION
     Route: 048
     Dates: start: 20040905

REACTIONS (1)
  - Neuropathy peripheral [Not Recovered/Not Resolved]

NARRATIVE: CASE EVENT DATE: 2003
